FAERS Safety Report 16526602 (Version 1)
Quarter: 2019Q3

REPORT INFORMATION
  Report Type: Report from Study
  Country: FR (occurrence: FR)
  Receive Date: 20190703
  Receipt Date: 20190703
  Transmission Date: 20191004
  Serious: Yes (Hospitalization)
  Sender: FDA-Public Use
  Company Number: FR-MYLANLABS-2019M1062115

PATIENT
  Age: 63 Year
  Sex: Male

DRUGS (6)
  1. FENTANYL. [Suspect]
     Active Substance: FENTANYL
     Indication: PAIN
     Dosage: UNK
     Route: 065
  2. PECFENT [Suspect]
     Active Substance: FENTANYL CITRATE
     Indication: PAIN
     Dosage: UNKNOWN
     Route: 065
  3. MOVICOL [Suspect]
     Active Substance: POLYETHYLENE GLYCOL 3350\POTASSIUM CHLORIDE\SODIUM BICARBONATE\SODIUM CHLORIDE
     Indication: CONSTIPATION
     Dosage: 2 DOSAGE FORM, QD (2 DF/DAY)
     Route: 048
  4. MOVENTIG [Suspect]
     Active Substance: NALOXEGOL OXALATE
     Dosage: 25 MILLIGRAM, QD
     Route: 048
     Dates: start: 20190105
  5. MOVENTIG [Suspect]
     Active Substance: NALOXEGOL OXALATE
     Indication: CONSTIPATION
     Dosage: UNKNOWN
     Route: 048
     Dates: start: 20181204
  6. SOLU-MEDROL [Concomitant]
     Active Substance: METHYLPREDNISOLONE SODIUM SUCCINATE
     Indication: METASTASES TO CENTRAL NERVOUS SYSTEM
     Dosage: 120 MILLIGRAM
     Route: 042
     Dates: start: 20190102

REACTIONS (2)
  - Product administration error [Not Recovered/Not Resolved]
  - Confusional state [Not Recovered/Not Resolved]

NARRATIVE: CASE EVENT DATE: 20181204
